FAERS Safety Report 12542220 (Version 1)
Quarter: 2016Q3

REPORT INFORMATION
  Report Type: Report from Study
  Country: DE (occurrence: DE)
  Receive Date: 20160708
  Receipt Date: 20160708
  Transmission Date: 20161109
  Serious: Yes (Other)
  Sender: FDA-Public Use
  Company Number: DE-BIOGEN-2016BI00261578

PATIENT
  Age: 0 Day
  Sex: Male
  Weight: 1.33 kg

DRUGS (2)
  1. L-THYROX [Concomitant]
     Active Substance: LEVOTHYROXINE SODIUM
     Indication: HYPOTHYROIDISM
     Route: 064
     Dates: start: 2015, end: 20150610
  2. AVONEX [Suspect]
     Active Substance: INTERFERON BETA-1A
     Indication: MATERNAL EXPOSURE TIMING UNSPECIFIED
     Route: 064
     Dates: start: 20130601, end: 201411

REACTIONS (4)
  - Low birth weight baby [Recovered/Resolved]
  - Umbilical cord around neck [Recovered/Resolved]
  - Foetal heart rate abnormal [Recovered/Resolved]
  - Foetal exposure during pregnancy [Recovered/Resolved]

NARRATIVE: CASE EVENT DATE: 20150610
